FAERS Safety Report 10279513 (Version 1)
Quarter: 2014Q3

REPORT INFORMATION
  Report Type: Spontaneous
  Country: AU (occurrence: None)
  Receive Date: 20140701
  Receipt Date: 20140701
  Transmission Date: 20150326
  Serious: Yes (Death, Hospitalization)
  Sender: FDA-Public Use
  Company Number: 153336

PATIENT
  Age: 45 Year
  Sex: Male

DRUGS (2)
  1. CYCLOSPORINE. [Suspect]
     Active Substance: CYCLOSPORINE
     Indication: CHEMOTHERAPY
  2. METHOTREXATE [Suspect]
     Active Substance: METHOTREXATE
     Indication: CHEMOTHERAPY

REACTIONS (12)
  - Diarrhoea [None]
  - Nausea [None]
  - Pancytopenia [None]
  - Abdominal pain [None]
  - Multi-organ failure [None]
  - Pyrexia [None]
  - Oliguria [None]
  - Post transplant lymphoproliferative disorder [None]
  - Vomiting [None]
  - Clostridium test positive [None]
  - Lactic acidosis [None]
  - Rash [None]
